FAERS Safety Report 4966046-X (Version None)
Quarter: 2006Q2

REPORT INFORMATION
  Report Type: 
  Country: None (occurrence: None)
  Receive Date: 20060407
  Receipt Date: 20060309
  Transmission Date: 20061013
  Serious: No
  Sender: FDA-Public Use
  Company Number: CA-AMGEN-US171857

PATIENT
  Sex: Male

DRUGS (2)
  1. ARANESP [Suspect]
     Indication: RENAL FAILURE CHRONIC
     Dates: start: 20060206
  2. EPREX [Suspect]
     Route: 042
     Dates: start: 20050904, end: 20060209

REACTIONS (1)
  - ANAEMIA [None]
